FAERS Safety Report 19943233 (Version 2)
Quarter: 2022Q1

REPORT INFORMATION
  Report Type: Spontaneous
  Country: US (occurrence: US)
  Receive Date: 20211011
  Receipt Date: 20220112
  Transmission Date: 20220423
  Serious: No
  Sender: FDA-Public Use
  Company Number: US-INTRA-CELLULAR THERAPIES, INC.-2021ICT00381

PATIENT
  Sex: Female
  Weight: 82.993 kg

DRUGS (9)
  1. CAPLYTA [Suspect]
     Active Substance: LUMATEPERONE
     Indication: Schizoaffective disorder
     Dosage: 42 MG, 1X/DAY AT WITH WATER AT BEDTIME
     Route: 048
     Dates: start: 20210331, end: 202107
  2. CAPLYTA [Suspect]
     Active Substance: LUMATEPERONE
     Dosage: TAKE THE CAPSULE APART AND TAKE ONLY PART OF IT
     Route: 048
     Dates: start: 202107, end: 202107
  3. CAPLYTA [Suspect]
     Active Substance: LUMATEPERONE
     Dosage: 42 MG, 1X/DAY WITH WATER AT BEDTIME
     Route: 048
     Dates: start: 202107
  4. INVEGA [Suspect]
     Active Substance: PALIPERIDONE
     Dosage: 6 MG, 1XDAY, AT BEDTIME
     Dates: start: 202107, end: 2021
  5. INVEGA [Suspect]
     Active Substance: PALIPERIDONE
     Dosage: 9 MG PER DAY
     Dates: start: 2021, end: 2021
  6. INVEGA [Suspect]
     Active Substance: PALIPERIDONE
     Dosage: 1.5 MG, 4X/DAY
     Dates: start: 2021
  7. NEURONTIN [Concomitant]
     Active Substance: GABAPENTIN
     Dosage: 1200 MG, 1X/DAY AT BEDTIME
  8. NEURONTIN [Concomitant]
     Active Substance: GABAPENTIN
     Dosage: 600 MG, 1X/DAY IN THE MORNING
  9. XANAX [Concomitant]
     Active Substance: ALPRAZOLAM
     Dosage: 1 MG, 1X/DAY AT BEDTIME

REACTIONS (12)
  - Mania [Recovered/Resolved]
  - Logorrhoea [Recovered/Resolved]
  - Abnormal behaviour [Recovered/Resolved]
  - Drug intolerance [Recovered/Resolved]
  - Weight decreased [Unknown]
  - Gait disturbance [Recovered/Resolved]
  - Increased appetite [Not Recovered/Not Resolved]
  - Product use issue [Recovered/Resolved]
  - Off label use [Not Recovered/Not Resolved]
  - Intentional product misuse [Recovered/Resolved]
  - Decreased appetite [Recovering/Resolving]
  - Unevaluable event [Recovered/Resolved]

NARRATIVE: CASE EVENT DATE: 20210101
